FAERS Safety Report 12471211 (Version 6)
Quarter: 2017Q1

REPORT INFORMATION
  Report Type: Report from Study
  Country: US (occurrence: US)
  Receive Date: 20160616
  Receipt Date: 20170223
  Transmission Date: 20170428
  Serious: Yes (Hospitalization, Other)
  Sender: FDA-Public Use
  Company Number: US-GILEAD-2016-0218367

PATIENT
  Age: 60 Year
  Sex: Male

DRUGS (3)
  1. AMBRISENTAN [Suspect]
     Active Substance: AMBRISENTAN
     Indication: PRODUCT USED FOR UNKNOWN INDICATION
     Dosage: 10 MG, QD
     Route: 065
     Dates: start: 20150601
  2. COUMADIN [Suspect]
     Active Substance: WARFARIN SODIUM
     Indication: PRODUCT USED FOR UNKNOWN INDICATION
     Route: 065
  3. DILTIAZEM. [Concomitant]
     Active Substance: DILTIAZEM

REACTIONS (9)
  - Haemarthrosis [Unknown]
  - Vascular graft [Unknown]
  - Cellulitis [Unknown]
  - Leg amputation [Unknown]
  - Finger amputation [Unknown]
  - Coagulopathy [Unknown]
  - Dyspnoea [Unknown]
  - Oedema [Unknown]
  - Haematoma [Unknown]

NARRATIVE: CASE EVENT DATE: 20160613
